FAERS Safety Report 5477555-1 (Version None)
Quarter: 2007Q4

REPORT INFORMATION
  Report Type: 
  Country: None (occurrence: None)
  Receive Date: 20071002
  Receipt Date: 20070917
  Transmission Date: 20080405
  Serious: Yes (Life-Threatening, Hospitalization)
  Sender: FDA-Public Use
  Company Number: DSA_30653_2007

PATIENT
  Sex: Male

DRUGS (4)
  1. LORAZEPAM [Suspect]
     Dosage: 10 MG 1X ORAL
     Route: 048
     Dates: start: 20070901, end: 20070901
  2. ASPIRIN [Suspect]
     Dosage: 500 MG 1X ORAL
     Route: 048
     Dates: start: 20070901, end: 20070901
  3. DOXEPIN HCL [Suspect]
     Dosage: NOT THE PRESCRIBED AMOUNT ORAL
     Route: 048
     Dates: start: 20070901, end: 20070901
  4. ETHANOL (ALCOHOL - ETHANOL) [Suspect]
     Dosage: NOT THE PRESCRIBED AMOUNT ORAL
     Route: 048
     Dates: start: 20070901, end: 20070901

REACTIONS (3)
  - ABDOMINAL PAIN UPPER [None]
  - OVERDOSE [None]
  - SUICIDE ATTEMPT [None]
